FAERS Safety Report 19232168 (Version 1)
Quarter: 2021Q2

REPORT INFORMATION
  Report Type: Spontaneous
  Country: US (occurrence: US)
  Receive Date: 20210507
  Receipt Date: 20210507
  Transmission Date: 20210717
  Serious: Yes (Other)
  Sender: FDA-Public Use
  Company Number: US-BAYER-2021-134815

PATIENT
  Age: 58 Year
  Sex: Male

DRUGS (2)
  1. ACETYLSALICYLIC ACID [Suspect]
     Active Substance: ASPIRIN
     Indication: ANTIPLATELET THERAPY
     Route: 048
  2. WARFARIN [Suspect]
     Active Substance: WARFARIN

REACTIONS (5)
  - Anaemia [Recovered/Resolved]
  - Contraindicated product administered [None]
  - Labelled drug-drug interaction medication error [None]
  - Labelled drug-disease interaction medication error [None]
  - Small intestinal haemorrhage [Recovered/Resolved]
